FAERS Safety Report 16767484 (Version 1)
Quarter: 2019Q3

REPORT INFORMATION
  Report Type: Spontaneous
  Country: GB (occurrence: GB)
  Receive Date: 20190903
  Receipt Date: 20190903
  Transmission Date: 20191005
  Serious: Yes (Other)
  Sender: FDA-Public Use
  Company Number: GB-MYLANLABS-2019M1081544

PATIENT
  Sex: Male

DRUGS (2)
  1. EMTRICITABINE/TENOFOVIR DISOPROXIL/TENOFOVIR DISOPROXIL FUMARATE [Suspect]
     Active Substance: EMTRICITABINE\TENOFOVIR DISOPROXIL FUMARATE
     Indication: PROPHYLAXIS AGAINST HIV INFECTION
     Dosage: 1 DOSAGE FORM, QD
     Route: 048
     Dates: start: 20180111
  2. ZOPICLONE [Concomitant]
     Active Substance: ZOPICLONE
     Dosage: UNK

REACTIONS (4)
  - Headache [Recovering/Resolving]
  - Rash [Recovering/Resolving]
  - Livedo reticularis [Recovering/Resolving]
  - Skin discolouration [Recovering/Resolving]

NARRATIVE: CASE EVENT DATE: 20180111
